FAERS Safety Report 12110428 (Version 1)
Quarter: 2016Q1

REPORT INFORMATION
  Report Type: Report from Study
  Country: US (occurrence: US)
  Receive Date: 20160224
  Receipt Date: 20160224
  Transmission Date: 20160526
  Serious: Yes (Hospitalization)
  Sender: FDA-Public Use
  Company Number: PHHO2015US019789

PATIENT
  Age: 38 Year
  Sex: Male

DRUGS (6)
  1. CYCLOPHOSPHAMIDE. [Suspect]
     Active Substance: CYCLOPHOSPHAMIDE
     Indication: MANTLE CELL LYMPHOMA
     Dosage: 300 MG/M2, Q12H X 6 DOSES (CYCLES 1, 3, 5)
     Route: 065
     Dates: start: 20150924
  2. METHOTREXATE [Concomitant]
     Active Substance: METHOTREXATE
     Indication: PRODUCT USED FOR UNKNOWN INDICATION
     Dosage: 1000 MG/M2 X DAY 3 FOR 24 H (CYCLES 2, 4, 6)
     Route: 065
     Dates: start: 20151015
  3. CYTARABINE. [Suspect]
     Active Substance: CYTARABINE
     Indication: MANTLE CELL LYMPHOMA
     Dosage: 1000 MG/M2, Q12H FOR 4 DOSES (CYCLES 2, 4, 6)
     Route: 065
     Dates: start: 20151015
  4. OFATUMUMAB [Suspect]
     Active Substance: OFATUMUMAB
     Indication: MANTLE CELL LYMPHOMA
     Dosage: 1000 MG X DAY1 (ALL CYCLES)
     Route: 065
     Dates: start: 20150921
  5. VINCRISTINE [Concomitant]
     Active Substance: VINCRISTINE
     Indication: MANTLE CELL LYMPHOMA
     Dosage: 1.4 MG/M2, DAYS 6 AND 13 (CYCLES 1, 3, 5)
     Route: 065
     Dates: start: 20150927
  6. DOXORUBICIN [Suspect]
     Active Substance: DOXORUBICIN
     Indication: MANTLE CELL LYMPHOMA
     Dosage: 16.6 MG/M2 QD X3 DAYS (CYCLES 1, 3, 5)
     Route: 065
     Dates: start: 20150927

REACTIONS (1)
  - Enterocolitis infectious [Recovered/Resolved]

NARRATIVE: CASE EVENT DATE: 20151117
